FAERS Safety Report 8273857-4 (Version None)
Quarter: 2012Q2

REPORT INFORMATION
  Report Type: 
  Country: None (occurrence: None)
  Receive Date: 20120409
  Receipt Date: 20120327
  Transmission Date: 20120825
  Serious: Yes (Hospitalization)
  Sender: FDA-Public Use
  Company Number: JPI-P-020606

PATIENT
  Age: 53 Year
  Sex: Male

DRUGS (2)
  1. XYREM [Suspect]
     Indication: NARCOLEPSY
     Dosage: 8 GM (4 GM, 2 IN 1 D), ORAL, 9 GM (4.5 GM, 2 IN 1 D), ORAL
     Route: 048
     Dates: start: 20070730
  2. XYREM [Suspect]
     Indication: NARCOLEPSY
     Dosage: 8 GM (4 GM, 2 IN 1 D), ORAL, 9 GM (4.5 GM, 2 IN 1 D), ORAL
     Route: 048
     Dates: start: 20070824

REACTIONS (16)
  - ABNORMAL BEHAVIOUR [None]
  - PSYCHOTIC DISORDER [None]
  - URINARY INCONTINENCE [None]
  - INSOMNIA [None]
  - WEIGHT DECREASED [None]
  - SEASONAL AFFECTIVE DISORDER [None]
  - DYSKINESIA [None]
  - HALLUCINATION [None]
  - DELUSION [None]
  - MANIA [None]
  - FUNGAL INFECTION [None]
  - GASTROOESOPHAGEAL REFLUX DISEASE [None]
  - BIPOLAR DISORDER [None]
  - AGGRESSION [None]
  - SOMNAMBULISM [None]
  - EMOTIONAL DISTRESS [None]
